FAERS Safety Report 8864235 (Version 1)
Quarter: 2012Q4

REPORT INFORMATION
  Report Type: 
  Country: US (occurrence: US)
  Receive Date: 20121024
  Receipt Date: 20121024
  Transmission Date: 20130627
  Serious: No
  Sender: FDA-Public Use
  Company Number: US-AMGEN-USASP2011066308

PATIENT
  Age: 70 Year
  Sex: Female
  Weight: 73.47 kg

DRUGS (11)
  1. ENBREL [Suspect]
     Indication: PRODUCT USED FOR UNKNOWN INDICATION
     Dosage: 50 mg, qwk
     Route: 058
  2. SINGULAIR [Concomitant]
     Dosage: 10 mg, UNK
  3. DICLOFENAC [Concomitant]
     Dosage: 100 mg, UNK
  4. ALBUTEROL                          /00139501/ [Concomitant]
     Dosage: 90 mg, UNK
  5. WELLBUTRIN [Concomitant]
     Dosage: 150 mg, UNK
  6. FLOVENT [Concomitant]
     Dosage: 44 mg, UNK
  7. PRILOSEC                           /00661201/ [Concomitant]
     Dosage: 10 mg, UNK
  8. METHOTREXATE [Concomitant]
     Dosage: 250 mg, UNK
  9. CARAFATE [Concomitant]
     Dosage: 10 ml, UNK
  10. LIDOCAINE                          /00033402/ [Concomitant]
     Dosage: 3 %, UNK
  11. PROZAC [Concomitant]
     Dosage: 20 mg, UNK

REACTIONS (1)
  - Skin infection [Recovering/Resolving]
